FAERS Safety Report 5893095-X (Version None)
Quarter: 2008Q3

REPORT INFORMATION
  Report Type: 
  Country: None (occurrence: None)
  Receive Date: 20080923
  Receipt Date: 20080912
  Transmission Date: 20090109
  Serious: Yes (Other)
  Sender: FDA-Public Use
  Company Number: DE-ROCHE-549574

PATIENT
  Sex: Male
  Weight: 75 kg

DRUGS (1)
  1. TAMIFLU [Suspect]
     Indication: INFLUENZA
     Dosage: DOSAGE REGIMEN REPORTED AS 2 X75 MG/DAY.
     Route: 048
     Dates: start: 20080218, end: 20080219

REACTIONS (3)
  - FLANK PAIN [None]
  - HAEMATURIA [None]
  - PROTEIN URINE PRESENT [None]
